FAERS Safety Report 10167387 (Version 1)
Quarter: 2014Q2

REPORT INFORMATION
  Report Type: Spontaneous
  Country: US (occurrence: US)
  Receive Date: 20140512
  Receipt Date: 20140512
  Transmission Date: 20141212
  Serious: Yes (Hospitalization, Congenital Anomaly)
  Sender: FDA-Public Use
  Company Number: US-PFIZER INC-2014126636

PATIENT
  Sex: Female

DRUGS (8)
  1. ZOLOFT [Suspect]
     Dosage: UNK
     Route: 064
     Dates: start: 20110127
  2. SERTRALINE HCL [Suspect]
     Dosage: UNK
     Route: 064
     Dates: start: 20110127
  3. HYDROCODONE/ACETAMINOPHEN [Concomitant]
     Dosage: UNK
     Route: 064
  4. HYDROXYCHLOROQUINE [Concomitant]
     Dosage: UNK
     Route: 064
  5. METOCLOPRAMIDE [Concomitant]
     Dosage: UNK
     Route: 064
  6. LEVOTHYROXINE [Concomitant]
     Dosage: UNK
     Route: 064
  7. X-VIATE [Concomitant]
     Dosage: UNK
     Route: 064
  8. PROMETHAZINE [Concomitant]
     Dosage: UNK
     Route: 064

REACTIONS (2)
  - Maternal exposure during pregnancy [Unknown]
  - Vesicoureteric reflux [Unknown]
